FAERS Safety Report 5283005-0 (Version None)
Quarter: 2007Q2

REPORT INFORMATION
  Report Type: 
  Country: None (occurrence: None)
  Receive Date: 20070402
  Receipt Date: 20070320
  Transmission Date: 20071010
  Serious: Yes (Hospitalization)
  Sender: FDA-Public Use
  Company Number: AU-AMGEN-US215652

PATIENT
  Sex: Male

DRUGS (5)
  1. AMG 706 [Suspect]
     Indication: METASTATIC NEOPLASM
     Route: 048
     Dates: start: 20070307
  2. PANITUMUMAB [Suspect]
     Indication: COLORECTAL CANCER
     Route: 042
     Dates: start: 20070305
  3. FLUOROURACIL [Concomitant]
     Route: 065
  4. LEUCOVORIN CALCIUM [Concomitant]
     Route: 065
  5. OXALIPLATIN [Concomitant]
     Route: 065

REACTIONS (3)
  - CELLULITIS [None]
  - PERIORBITAL OEDEMA [None]
  - RASH [None]
